FAERS Safety Report 7807982-6 (Version None)
Quarter: 2011Q4

REPORT INFORMATION
  Report Type: 
  Country: None (occurrence: None)
  Receive Date: 20111011
  Receipt Date: 20111011
  Transmission Date: 20120403
  Serious: Yes (Life-Threatening, Hospitalization)
  Sender: FDA-Public Use
  Company Number: None

PATIENT
  Age: 58 Year
  Sex: Male
  Weight: 84.821 kg

DRUGS (1)
  1. ZELBORAF [Suspect]
     Indication: MALIGNANT MELANOMA
     Dosage: 760 MG
     Dates: start: 20110802, end: 20110804

REACTIONS (15)
  - MALAISE [None]
  - CHEST PAIN [None]
  - LACK OF SATIETY [None]
  - ABASIA [None]
  - EATING DISORDER [None]
  - VOMITING [None]
  - MUSCLE SPASMS [None]
  - PYREXIA [None]
  - PAIN [None]
  - HEADACHE [None]
  - VISION BLURRED [None]
  - DYSSTASIA [None]
  - ASTHENIA [None]
  - INSOMNIA [None]
  - DECREASED APPETITE [None]
